FAERS Safety Report 9447280 (Version 2)
Quarter: 2013Q4

REPORT INFORMATION
  Report Type: Spontaneous
  Country: GB (occurrence: GB)
  Receive Date: 20130808
  Receipt Date: 20131203
  Transmission Date: 20140711
  Serious: Yes (Disabling, Other)
  Sender: FDA-Public Use
  Company Number: GB-009507513-1308GBR001446

PATIENT
  Age: 30 Year
  Sex: Male
  Weight: 63.5 kg

DRUGS (2)
  1. ELOCON [Suspect]
     Indication: DRY SKIN
     Dosage: UNK
     Route: 061
  2. BETNOVATE [Suspect]
     Indication: DRY SKIN
     Dosage: UNK
     Route: 061

REACTIONS (10)
  - Adrenal disorder [Recovering/Resolving]
  - Depression [Recovering/Resolving]
  - Erythema [Recovering/Resolving]
  - Arthralgia [Recovering/Resolving]
  - Generalised erythema [Not Recovered/Not Resolved]
  - Skin swelling [Recovering/Resolving]
  - Wound secretion [Recovering/Resolving]
  - Skin irritation [Recovering/Resolving]
  - Withdrawal syndrome [Unknown]
  - Drug ineffective [Unknown]
